FAERS Safety Report 4394210-X (Version None)
Quarter: 2004Q3

REPORT INFORMATION
  Report Type: 
  Country: None (occurrence: None)
  Receive Date: 20040706
  Receipt Date: 20040618
  Transmission Date: 20050211
  Serious: Yes (Hospitalization)
  Sender: FDA-Public Use
  Company Number: WAES 0406USA01783

PATIENT
  Age: 49 Year
  Sex: Female
  Weight: 66.6788 kg

DRUGS (9)
  1. PRINZIDE UNK [Suspect]
     Dosage: 20/12.5 MG/DAILY; PO
     Route: 048
  2. BLINDED THERAPY UNK [Suspect]
     Indication: DIABETIC RETINOPATHY
     Dosage: UNK, UNK, UNK
     Route: 065
     Dates: start: 20010705, end: 20040123
  3. PLACEBO (UNSPECIFIED) UNK [Suspect]
     Indication: DIABETIC RETINOPATHY
     Dosage: UNK, UNK; UNK
     Route: 065
     Dates: start: 20010705, end: 20040123
  4. AVANDIA [Concomitant]
  5. LANTUS [Concomitant]
  6. LIPITOR [Concomitant]
  7. ASPIRIN [Concomitant]
  8. ATENOLOL [Concomitant]
  9. GLIPIZIDE [Concomitant]

REACTIONS (14)
  - ANAEMIA [None]
  - ATELECTASIS [None]
  - BILE DUCT OBSTRUCTION [None]
  - BLOOD CHLORIDE DECREASED [None]
  - BLOOD GLUCOSE INCREASED [None]
  - BLOOD SODIUM DECREASED [None]
  - CARDIOMEGALY [None]
  - CHOLELITHIASIS [None]
  - HEPATOMEGALY [None]
  - LUNG INFILTRATION [None]
  - PANCREATITIS [None]
  - PLEURAL EFFUSION [None]
  - RENAL FAILURE [None]
  - SCAR [None]
